FAERS Safety Report 9162341 (Version 1)
Quarter: 2013Q1

REPORT INFORMATION
  Report Type: Spontaneous
  Country: CZ (occurrence: None)
  Receive Date: 20130222
  Receipt Date: 20130222
  Transmission Date: 20140127
  Serious: Yes (Hospitalization)
  Sender: FDA-Public Use
  Company Number: 2013AP003249

PATIENT
  Age: 65 Year
  Sex: Female

DRUGS (1)
  1. APO-ALLOPURINOL [Suspect]
     Indication: HYPERURICAEMIA
     Route: 048
     Dates: start: 201106

REACTIONS (5)
  - Toxic epidermal necrolysis [None]
  - Hypersensitivity [None]
  - Visual impairment [None]
  - Photophobia [None]
  - Lacrimation increased [None]
